FAERS Safety Report 8950755 (Version 1)
Quarter: 2012Q4

REPORT INFORMATION
  Report Type: 
  Country: US (occurrence: US)
  Receive Date: 20121207
  Receipt Date: 20121207
  Transmission Date: 20130627
  Serious: Yes (Other)
  Sender: FDA-Public Use
  Company Number: US-JNJCP-30000138218

PATIENT
  Age: 23 Year
  Sex: Female
  Weight: 86 kg

DRUGS (7)
  1. NTG [Suspect]
     Indication: ACNE
     Dosage: small dab size amount on a q-tip and applied to chin once
     Route: 061
     Dates: start: 20121116, end: 20121117
  2. NO DRUG NAME [Concomitant]
  3. NO DRUG NAME [Concomitant]
  4. NO DRUG NAME [Concomitant]
  5. NO DRUG NAME [Concomitant]
  6. NO DRUG NAME [Concomitant]
  7. NO DRUG NAME [Concomitant]

REACTIONS (6)
  - Application site pain [Recovering/Resolving]
  - Application site swelling [Recovering/Resolving]
  - Application site erythema [Recovering/Resolving]
  - Application site discharge [Recovering/Resolving]
  - Application site erosion [Recovering/Resolving]
  - Application site scab [Recovering/Resolving]
